FAERS Safety Report 24569222 (Version 1)
Quarter: 2024Q4

REPORT INFORMATION
  Report Type: Spontaneous
  Country: FR (occurrence: FR)
  Receive Date: 20241031
  Receipt Date: 20241031
  Transmission Date: 20250115
  Serious: Yes (Other)
  Sender: GLAXOSMITHKLINE
  Company Number: None

PATIENT

DRUGS (2)
  1. BENLYSTA [Suspect]
     Active Substance: BELIMUMAB
     Indication: Systemic lupus erythematosus
     Dosage: 10 MG/KG, Q2W (10 MG/KG AT S0, S2 AND S4 THEN ONCE A MONTH)
     Route: 042
     Dates: start: 20240212, end: 20240313
  2. BENLYSTA [Suspect]
     Active Substance: BELIMUMAB
     Dosage: 10 MG/KG, MO (10 MG/KG AT S0, S2 AND S4 THEN ONCE A MONTH)
     Route: 042
     Dates: start: 20240412, end: 20240510

REACTIONS (1)
  - Mixed anxiety and depressive disorder [Recovered/Resolved]

NARRATIVE: CASE EVENT DATE: 20240501
